FAERS Safety Report 4371378-2 (Version None)
Quarter: 2004Q2

REPORT INFORMATION
  Report Type: 
  Country: None (occurrence: None)
  Receive Date: 20040604
  Receipt Date: 20040520
  Transmission Date: 20050107
  Serious: Yes (Hospitalization, Other)
  Sender: FDA-Public Use
  Company Number: 2004S1001344

PATIENT
  Age: 89 Year
  Sex: Male

DRUGS (9)
  1. NITROFURANTOIN [Suspect]
     Indication: PROPHYLAXIS
     Dosage: 100MG (ONE DOSE), ORAL
     Route: 048
     Dates: start: 20040503
  2. NITROFURANTOIN [Suspect]
     Indication: URINARY TRACT INFECTION
     Dosage: 100MG (ONE DOSE), ORAL
     Route: 048
     Dates: start: 20040503
  3. LEVOTHYROXINE SODIUM [Concomitant]
  4. PREDNISONE [Concomitant]
  5. TAMSULOSIN [Concomitant]
  6. ATENOLOL [Concomitant]
  7. DIPHENOXYLATE/ATROPINE SULFATE [Concomitant]
  8. LISONPRIL [Concomitant]
  9. ASPIRIN [Concomitant]

REACTIONS (7)
  - FAECAL INCONTINENCE [None]
  - FEELING ABNORMAL [None]
  - FLUID RETENTION [None]
  - MEDICATION ERROR [None]
  - PNEUMONIA [None]
  - STUPOR [None]
  - URINARY INCONTINENCE [None]
